FAERS Safety Report 6980473-0 (Version None)
Quarter: 2010Q3

REPORT INFORMATION
  Report Type: 
  Country: None (occurrence: None)
  Receive Date: 20100914
  Receipt Date: 20100629
  Transmission Date: 20110219
  Serious: Yes (Other)
  Sender: FDA-Public Use
  Company Number: FR-CELGENEUS-056-21880-10070520

PATIENT

DRUGS (2)
  1. REVLIMID [Suspect]
     Indication: POEMS SYNDROME
     Route: 048
  2. DEXAMETHASONE [Concomitant]
     Indication: POEMS SYNDROME
     Route: 065

REACTIONS (1)
  - HAEMATOTOXICITY [None]
